FAERS Safety Report 7622789-0 (Version None)
Quarter: 2011Q3

REPORT INFORMATION
  Report Type: 
  Country: None (occurrence: None)
  Receive Date: 20110712
  Receipt Date: 20110629
  Transmission Date: 20111222
  Serious: Yes (Death, Life-Threatening, Hospitalization, Disabling, Other)
  Sender: FDA-Public Use
  Company Number: US-2011-10068

PATIENT
  Age: 72 Year
  Sex: Male

DRUGS (7)
  1. CYCLOPHOSPHAMIDE [Concomitant]
  2. COMPAZINE [Concomitant]
  3. POTASSIUM (POTASSIUM CHLORIDE) [Concomitant]
  4. ETOPOSIDE [Concomitant]
  5. LORAZEPAM [Concomitant]
  6. OXYCODONE HCL [Concomitant]
  7. BUSULFAN [Suspect]
     Indication: LYMPHOMA
     Dosage: 60 MG MILLIGRAM(S), DAILY DOSE, INTRAVENOUS
     Route: 042
     Dates: start: 20101105, end: 20101105

REACTIONS (17)
  - PNEUMONIA [None]
  - SYNCOPE [None]
  - BLOOD ALKALINE PHOSPHATASE INCREASED [None]
  - ERYTHEMA MULTIFORME [None]
  - ACUTE RESPIRATORY DISTRESS SYNDROME [None]
  - GENERAL PHYSICAL HEALTH DETERIORATION [None]
  - HYPONATRAEMIA [None]
  - HYPOVOLAEMIC SHOCK [None]
  - STAPHYLOCOCCAL SEPSIS [None]
  - RENAL FAILURE ACUTE [None]
  - BLOOD BILIRUBIN INCREASED [None]
  - PANCYTOPENIA [None]
  - RESPIRATORY FAILURE [None]
  - LOWER GASTROINTESTINAL HAEMORRHAGE [None]
  - SEPTIC SHOCK [None]
  - GENERALISED OEDEMA [None]
  - DELIRIUM [None]
